FAERS Safety Report 7298850-X (Version None)
Quarter: 2011Q1

REPORT INFORMATION
  Report Type: 
  Country: None (occurrence: None)
  Receive Date: 20110217
  Receipt Date: 20110208
  Transmission Date: 20110831
  Serious: Yes (Hospitalization)
  Sender: FDA-Public Use
  Company Number: AU-JNJFOC-20110203388

PATIENT
  Sex: Male

DRUGS (15)
  1. ACCUPRIL [Concomitant]
  2. HYDRENE [Concomitant]
  3. FERRO-GRADUMET [Concomitant]
  4. LEVOTHYROXINE SODIUM [Concomitant]
  5. MELIZIDE [Concomitant]
  6. USTEKINUMAB [Suspect]
     Route: 058
  7. SOMAC [Concomitant]
  8. PRAVACHOL [Concomitant]
  9. METOPROLOL [Concomitant]
  10. ATACAND [Concomitant]
  11. DIAFORMIN [Concomitant]
  12. USTEKINUMAB [Suspect]
     Indication: PRODUCT USED FOR UNKNOWN INDICATION
     Route: 058
  13. PROGOUT [Concomitant]
  14. WARFARIN [Concomitant]
  15. TRAMADOL HCL [Concomitant]

REACTIONS (1)
  - PULMONARY OEDEMA [None]
